FAERS Safety Report 17840858 (Version 1)
Quarter: 2020Q2

REPORT INFORMATION
  Report Type: Spontaneous
  Country: CN (occurrence: CN)
  Receive Date: 20200529
  Receipt Date: 20200529
  Transmission Date: 20200714
  Serious: Yes (Other)
  Sender: FDA-Public Use
  Company Number: CN-ASTRAZENECA-2020SE69501

PATIENT
  Age: 27426 Day
  Sex: Female
  Weight: 48 kg

DRUGS (3)
  1. MEPEM [Concomitant]
     Active Substance: MEROPENEM
     Indication: INFECTION
     Dosage: 0.5G/0.2 DAY
     Dates: start: 20200508, end: 20200510
  2. FRAXIPARINE [Concomitant]
     Active Substance: NADROPARIN CALCIUM
     Indication: THROMBOSIS PROPHYLAXIS
     Route: 058
     Dates: start: 20200508, end: 20200514
  3. NEXIUM [Suspect]
     Active Substance: ESOMEPRAZOLE MAGNESIUM
     Indication: HAEMORRHAGE PROPHYLAXIS
     Route: 042
     Dates: start: 20200508, end: 20200515

REACTIONS (1)
  - Bone marrow failure [Unknown]

NARRATIVE: CASE EVENT DATE: 20200510
